FAERS Safety Report 5599876-4 (Version None)
Quarter: 2008Q1

REPORT INFORMATION
  Report Type: 
  Country: None (occurrence: None)
  Receive Date: 20080117
  Receipt Date: 20080108
  Transmission Date: 20080703
  Serious: Yes (Other)
  Sender: FDA-Public Use
  Company Number: 18149

PATIENT
  Age: 43 Year
  Sex: Male

DRUGS (1)
  1. CARBOPLATIN [Suspect]
     Indication: NASOPHARYNGEAL CANCER
     Dosage: 400 MG/M2 OTH

REACTIONS (2)
  - RENAL CORTICAL NECROSIS [None]
  - RENAL FAILURE CHRONIC [None]
